FAERS Safety Report 11997695 (Version 1)
Quarter: 2016Q1

REPORT INFORMATION
  Report Type: Report from Study
  Country: DE (occurrence: KR)
  Receive Date: 20160203
  Receipt Date: 20160203
  Transmission Date: 20160526
  Serious: Yes (Death, Hospitalization, Other)
  Sender: FDA-Public Use
  Company Number: DE-ACTELION-A-US2016-131014

PATIENT
  Age: 30 Year
  Sex: Male

DRUGS (1)
  1. VENTAVIS [Suspect]
     Active Substance: ILOPROST
     Indication: PULMONARY ARTERIAL HYPERTENSION
     Dosage: 60 MCG (6 ML), 6ID
     Route: 055
     Dates: start: 20120103, end: 201601

REACTIONS (15)
  - Dyspnoea [Not Recovered/Not Resolved]
  - Loss of consciousness [Unknown]
  - Osteitis [Unknown]
  - Pain [Unknown]
  - Pulmonary arterial hypertension [Unknown]
  - Syncope [Recovered/Resolved]
  - Cardiac discomfort [Not Recovered/Not Resolved]
  - Death [Fatal]
  - Pulmonary embolism [Unknown]
  - Dyspnoea exertional [Not Recovered/Not Resolved]
  - Dyspnoea [Recovered/Resolved]
  - Asthenia [Not Recovered/Not Resolved]
  - Off label use [Unknown]
  - Cough [Unknown]
  - Pain in extremity [Recovered/Resolved]

NARRATIVE: CASE EVENT DATE: 20150910
